FAERS Safety Report 12159377 (Version 1)
Quarter: 2016Q1

REPORT INFORMATION
  Report Type: Spontaneous
  Country: None (occurrence: FR)
  Receive Date: 20160308
  Receipt Date: 20160308
  Transmission Date: 20160526
  Serious: Yes (Hospitalization)
  Sender: FDA-Public Use
  Company Number: FR-MERCK KGAA-1048792

PATIENT

DRUGS (1)
  1. NOVOTHYROX [Suspect]
     Active Substance: LEVOTHYROXINE SODIUM

REACTIONS (6)
  - Prescribed overdose [None]
  - Electrocardiogram ST segment elevation [None]
  - Cerebellar syndrome [None]
  - Hyperthyroidism [None]
  - Electrocardiogram ST segment depression [None]
  - Anterograde amnesia [None]
